FAERS Safety Report 20454623 (Version 1)
Quarter: 2022Q1

REPORT INFORMATION
  Report Type: Spontaneous
  Country: US (occurrence: None)
  Receive Date: 20220210
  Receipt Date: 20220210
  Transmission Date: 20220423
  Serious: Yes (Death)
  Sender: FDA-Public Use
  Company Number: None

PATIENT
  Age: 47 Year
  Sex: Male
  Weight: 84.3 kg

DRUGS (2)
  1. AXITINIB [Suspect]
     Active Substance: AXITINIB
     Indication: Product used for unknown indication
     Dates: end: 20220119
  2. PEMBROLIZUMAB [Suspect]
     Active Substance: PEMBROLIZUMAB
     Indication: Product used for unknown indication
     Dates: end: 20220113

REACTIONS (12)
  - Sepsis [None]
  - Multiple organ dysfunction syndrome [None]
  - Gastric perforation [None]
  - Haemofiltration [None]
  - Blood creatinine increased [None]
  - Intra-abdominal fluid collection [None]
  - Pneumoperitoneum [None]
  - Gastrostomy tube site complication [None]
  - Ventricular fibrillation [None]
  - Haemodialysis [None]
  - Procedural complication [None]
  - Gastrostomy failure [None]

NARRATIVE: CASE EVENT DATE: 20220204
